FAERS Safety Report 9418837 (Version 1)
Quarter: 2013Q3

REPORT INFORMATION
  Report Type: Spontaneous
  Country: ES (occurrence: ES)
  Receive Date: 20130725
  Receipt Date: 20130725
  Transmission Date: 20140515
  Serious: Yes (Other)
  Sender: FDA-Public Use
  Company Number: ES-JNJFOC-20130710098

PATIENT
  Age: 75 Year
  Sex: 0

DRUGS (10)
  1. XARELTO [Suspect]
     Indication: PRODUCT USED FOR UNKNOWN INDICATION
     Route: 048
     Dates: start: 201305, end: 20130527
  2. DIGOXIN [Concomitant]
     Route: 048
  3. SEGURIL [Concomitant]
     Route: 048
  4. ENALAPRIL [Concomitant]
     Route: 048
  5. ALLOPURINOL [Concomitant]
     Route: 048
  6. FLUTICASONE PROPIONATE W/SALMETEROL XINAFOATE [Concomitant]
     Route: 055
  7. CLIDINIUM BROMIDE [Concomitant]
     Route: 055
  8. CALCIUM W/COLECALCIFEROL [Concomitant]
     Route: 048
  9. PANTOPRAZOLE [Concomitant]
     Route: 048
  10. SIMVASTATIN [Concomitant]
     Route: 048

REACTIONS (2)
  - Syncope [Recovered/Resolved]
  - Head injury [Recovered/Resolved]
